FAERS Safety Report 9123175 (Version 2)
Quarter: 2013Q4

REPORT INFORMATION
  Report Type: Spontaneous
  Country: US (occurrence: US)
  Receive Date: 20130115
  Receipt Date: 20131024
  Transmission Date: 20140711
  Serious: Yes (Other)
  Sender: FDA-Public Use
  Company Number: US-PFIZER INC-2012157934

PATIENT
  Age: 48 Year
  Sex: Female
  Weight: 58.96 kg

DRUGS (10)
  1. LYRICA [Suspect]
     Indication: FIBROMYALGIA
     Dosage: 75 MG, 2X/DAY
     Route: 048
  2. LYRICA [Suspect]
     Dosage: UNK, 2XDAY
  3. LYRICA [Suspect]
     Dosage: UNK, 1X/DAY
  4. NEURONTIN [Concomitant]
  5. PROZAC [Concomitant]
     Indication: DEPRESSION
     Dosage: 20 MG, UNK
  6. CLONAZEPAM [Concomitant]
     Dosage: 0.5 MG, 3X/DAY
  7. LIDODERM [Concomitant]
     Dosage: UNK, 1X/DAY
  8. TRAZODONE [Concomitant]
     Dosage: 50 MG, 1X/DAY
  9. VISTARIL [Concomitant]
     Dosage: 50 MG, 1X/DAY
  10. PARAFON FORTE DSC [Concomitant]
     Indication: MUSCLE DISORDER
     Dosage: UNK, 4X/DAY

REACTIONS (6)
  - Intervertebral disc protrusion [Unknown]
  - Fibromyalgia [Unknown]
  - Drug ineffective [Unknown]
  - Fall [Unknown]
  - Pain [Unknown]
  - Intentional drug misuse [Unknown]
